FAERS Safety Report 7121816-7 (Version None)
Quarter: 2010Q4

REPORT INFORMATION
  Report Type: 
  Country: None (occurrence: None)
  Receive Date: 20101124
  Receipt Date: 20101119
  Transmission Date: 20110411
  Serious: Yes (Hospitalization, Other)
  Sender: FDA-Public Use
  Company Number: PHHY2010JP43597

PATIENT
  Age: 48 Year
  Sex: Male

DRUGS (4)
  1. NEORAL [Suspect]
     Indication: STEM CELL TRANSPLANT
     Dosage: UNK
     Route: 048
  2. NEORAL [Suspect]
     Dosage: UNK
  3. SANDIMMUNE [Suspect]
     Indication: STEM CELL TRANSPLANT
     Dosage: 1.5 MG
     Route: 042
  4. SANDIMMUNE [Suspect]
     Dosage: 2 MG DAILY
     Route: 042

REACTIONS (5)
  - ENDOTRACHEAL INTUBATION [None]
  - GRAFT VERSUS HOST DISEASE [None]
  - HYPOMAGNESAEMIA [None]
  - MYALGIA [None]
  - RHABDOMYOLYSIS [None]
